FAERS Safety Report 13900258 (Version 2)
Quarter: 2017Q3

REPORT INFORMATION
  Report Type: Spontaneous
  Country: JP (occurrence: JP)
  Receive Date: 20170824
  Receipt Date: 20170915
  Transmission Date: 20171127
  Serious: Yes (Death, Hospitalization, Other)
  Sender: FDA-Public Use
  Company Number: JP-GLAXOSMITHKLINE-JP2017JPN129027

PATIENT
  Age: 58 Year
  Sex: Female

DRUGS (1)
  1. VALTREX [Suspect]
     Active Substance: VALACYCLOVIR HYDROCHLORIDE
     Indication: HERPES ZOSTER
     Dosage: UNK
     Route: 048

REACTIONS (8)
  - Pulmonary embolism [Fatal]
  - Pustular psoriasis [Unknown]
  - Cutaneous symptom [Unknown]
  - Dermatitis exfoliative [Unknown]
  - Malaise [Unknown]
  - Acute kidney injury [Recovered/Resolved]
  - Venous thrombosis limb [Fatal]
  - Rash [Unknown]

NARRATIVE: CASE EVENT DATE: 2017
